FAERS Safety Report 20531555 (Version 2)
Quarter: 2022Q3

REPORT INFORMATION
  Report Type: Spontaneous
  Country: US (occurrence: US)
  Receive Date: 20220301
  Receipt Date: 20220720
  Transmission Date: 20221027
  Serious: No
  Sender: FDA-Public Use
  Company Number: US-SA-SAC20220223000858

PATIENT
  Age: 44 Year
  Sex: Female
  Weight: 77 kg

DRUGS (8)
  1. DUPIXENT [Suspect]
     Active Substance: DUPILUMAB
     Indication: Dermatitis atopic
     Dosage: 300 MG, QOW
     Route: 058
     Dates: start: 20210927
  2. EFFEXOR [Concomitant]
     Active Substance: VENLAFAXINE HYDROCHLORIDE
  3. GABAPENTIN [Concomitant]
     Active Substance: GABAPENTIN
  4. LIPITOR [Concomitant]
     Active Substance: ATORVASTATIN CALCIUM
  5. MUPIROCIN [Concomitant]
     Active Substance: MUPIROCIN
  6. BIDIL [Concomitant]
     Active Substance: HYDRALAZINE HYDROCHLORIDE\ISOSORBIDE DINITRATE
  7. CLOBETASOL [Concomitant]
     Active Substance: CLOBETASOL
  8. MUPIROCIN [Concomitant]
     Active Substance: MUPIROCIN

REACTIONS (2)
  - Urticaria [Recovered/Resolved]
  - Injection site irritation [Recovered/Resolved]

NARRATIVE: CASE EVENT DATE: 20220221
